FAERS Safety Report 8271352-X (Version None)
Quarter: 2012Q2

REPORT INFORMATION
  Report Type: 
  Country: None (occurrence: None)
  Receive Date: 20120410
  Receipt Date: 20120404
  Transmission Date: 20120825
  Serious: Yes (Death, Other)
  Sender: FDA-Public Use
  Company Number: BY-PFIZER INC-2011306346

PATIENT
  Age: 9 Year
  Sex: Female

DRUGS (6)
  1. VFEND [Suspect]
     Dosage: 200 MG, 2X/DAY
     Route: 048
     Dates: start: 20111020, end: 20111214
  2. VFEND [Suspect]
     Dosage: 200 MG, 2X/DAY
     Route: 048
     Dates: start: 20110531, end: 20110709
  3. VANCOMYCIN [Concomitant]
     Dosage: 500 MG, 2X/DAY
     Route: 042
  4. VFEND [Suspect]
     Dosage: 200 MG, 2X/DAY
     Route: 048
     Dates: start: 20110723, end: 20110815
  5. BISEPTOL [Concomitant]
     Dosage: 240 MG, 2X/DAY
     Route: 048
  6. VFEND [Suspect]
     Indication: BRONCHOPULMONARY ASPERGILLOSIS
     Dosage: 7 MG/KG, 2X/DAY
     Route: 042
     Dates: start: 20110518, end: 20110530

REACTIONS (3)
  - BACTERIAL SEPSIS [None]
  - DISEASE PROGRESSION [None]
  - DRUG INEFFECTIVE [None]
